FAERS Safety Report 9638558 (Version 2)
Quarter: 2013Q4

REPORT INFORMATION
  Report Type: Spontaneous
  Country: US (occurrence: US)
  Receive Date: 20131022
  Receipt Date: 20131212
  Transmission Date: 20140711
  Serious: Yes (Hospitalization)
  Sender: FDA-Public Use
  Company Number: US-B.I. PHARMACEUTICALS,INC./RIDGEFIELD-2013-BI-32880BP

PATIENT
  Age: 89 Year
  Sex: Female
  Weight: 79 kg

DRUGS (7)
  1. PRADAXA [Suspect]
     Indication: TRANSIENT ISCHAEMIC ATTACK
     Dosage: 300 MG
     Dates: start: 201109, end: 20130915
  2. PRADAXA [Suspect]
     Indication: ATRIAL FIBRILLATION
  3. CARDIZEM CD [Concomitant]
     Indication: HYPERTENSION
     Dosage: 180 MG
     Route: 048
  4. LISINOPRIL [Concomitant]
     Indication: HYPERTENSION
     Dosage: 7.5 MG
     Route: 048
  5. LIPITOR [Concomitant]
     Indication: BLOOD CHOLESTEROL INCREASED
     Dosage: 10 MG
     Route: 048
  6. FUROSEMIDE [Concomitant]
     Indication: LOCAL SWELLING
     Route: 048
  7. ELIQUIS [Concomitant]
     Indication: ATRIAL FIBRILLATION
     Dosage: 5 MG
     Route: 048

REACTIONS (6)
  - Clostridium difficile infection [Recovered/Resolved]
  - Colitis [Recovered/Resolved]
  - Rectal haemorrhage [Recovered/Resolved]
  - Fall [Recovered/Resolved]
  - Atrial fibrillation [Recovered/Resolved]
  - Off label use [Recovered/Resolved]
